FAERS Safety Report 4369946-7 (Version None)
Quarter: 2004Q2

REPORT INFORMATION
  Report Type: 
  Country: None (occurrence: None)
  Receive Date: 20040527
  Receipt Date: 20040512
  Transmission Date: 20050107
  Serious: Yes (Death, Other)
  Sender: FDA-Public Use
  Company Number: EWC040438930

PATIENT
  Age: 80 Year
  Sex: Male
  Weight: 61 kg

DRUGS (4)
  1. GEMZAR [Suspect]
     Indication: BLADDER CANCER
     Dosage: 1500 MG/2 OTHER
     Route: 050
     Dates: start: 20030612, end: 20030620
  2. CISPLATIN [Suspect]
     Indication: BLADDER CANCER
     Dosage: 100 MG/1 OTHER
     Route: 050
     Dates: start: 20030612, end: 20030612
  3. GM-CSF [Concomitant]
  4. HALOPERIDOL [Concomitant]

REACTIONS (5)
  - ANOREXIA [None]
  - ASTHENIA [None]
  - BLOOD ALBUMIN DECREASED [None]
  - PANCYTOPENIA [None]
  - PROTEIN TOTAL DECREASED [None]
